FAERS Safety Report 4880129-4 (Version None)
Quarter: 2006Q1

REPORT INFORMATION
  Report Type: 
  Country: None (occurrence: None)
  Receive Date: 20060113
  Receipt Date: 20050812
  Transmission Date: 20060701
  Serious: Yes (Death, Other)
  Sender: FDA-Public Use
  Company Number: PHEH2005US08977

PATIENT
  Age: 79 Year
  Sex: Female

DRUGS (2)
  1. ZOMETA [Suspect]
     Indication: BREAST CANCER METASTATIC
     Dosage: 4 MG MONTHLY
     Dates: start: 20040201, end: 20050920
  2. FEMARA [Suspect]
     Indication: BREAST CANCER METASTATIC
     Dates: start: 20040201

REACTIONS (4)
  - ABSCESS ORAL [None]
  - MALIGNANT NEOPLASM PROGRESSION [None]
  - OSTEONECROSIS [None]
  - PAIN IN JAW [None]
